FAERS Safety Report 4302709-7 (Version None)
Quarter: 2004Q1

REPORT INFORMATION
  Report Type: 
  Country: None (occurrence: None)
  Receive Date: 20040224
  Receipt Date: 20040211
  Transmission Date: 20041129
  Serious: Yes (Other)
  Sender: FDA-Public Use
  Company Number: PHBS2004US02247

PATIENT
  Age: 67 Year
  Sex: Male
  Weight: 95 kg

DRUGS (9)
  1. OCTREOTIDE ACETATE [Suspect]
     Indication: CARCINOID SYNDROME
     Dosage: 100 UG, BID
     Route: 058
  2. OCTREOTIDE ACETATE [Suspect]
     Dosage: 100 UG, BID
     Route: 042
  3. FELODIPINE [Concomitant]
     Dosage: 10 MG, BID
  4. ENALAPRIL [Concomitant]
     Dosage: 20 MG, BID
  5. FENTANYL [Concomitant]
     Dosage: 250 UG, ONCE/SINGLE
     Route: 042
  6. PROPOFOL [Concomitant]
     Dosage: 150 MG, ONCE/SINGLE
     Route: 042
  7. SUCCINYLCHOLINE CHLORIDE [Concomitant]
     Dosage: 120 MG, ONCE/SINGLE
     Route: 042
  8. ISOFLURANE [Concomitant]
  9. CISATRACURIUM [Concomitant]
     Dosage: 8 MG, ONCE/SINGLE
     Route: 042

REACTIONS (6)
  - ATRIOVENTRICULAR BLOCK COMPLETE [None]
  - ATRIOVENTRICULAR BLOCK SECOND DEGREE [None]
  - BLOOD PRESSURE DECREASED [None]
  - BRADYCARDIA [None]
  - FLUSHING [None]
  - MEDICATION ERROR [None]
